FAERS Safety Report 7222373-7 (Version None)
Quarter: 2011Q1

REPORT INFORMATION
  Report Type: 
  Country: None (occurrence: None)
  Receive Date: 20110112
  Receipt Date: 20110105
  Transmission Date: 20110831
  Serious: Yes (Other)
  Sender: FDA-Public Use
  Company Number: US-PFIZER INC-2011003208

PATIENT
  Sex: Female
  Weight: 122.45 kg

DRUGS (10)
  1. OXYCODONE [Concomitant]
     Indication: PAIN
     Dosage: 30 MG, UNK
  2. CALCIUM [Concomitant]
     Dosage: UNK
  3. DEXLANSOPRAZOLE [Concomitant]
     Indication: RESTLESS LEGS SYNDROME
     Dosage: UNK
  4. VITAMIN D [Concomitant]
     Dosage: UNK
  5. VITAMIN B COMPLEX [Concomitant]
     Dosage: UNK
  6. OXYBUTYNIN [Concomitant]
     Dosage: 5 MG, UNK
  7. REQUIP [Concomitant]
     Indication: RESTLESS LEGS SYNDROME
     Dosage: UNK
  8. LYRICA [Suspect]
     Indication: FIBROMYALGIA
     Dosage: 75 MG, 2X/DAY
     Route: 048
     Dates: start: 20101220
  9. COLACE [Concomitant]
     Dosage: UNK, 4X/DAY
  10. VITAMIN B-12 [Concomitant]
     Dosage: UNK, 1X/MONTH

REACTIONS (3)
  - SWELLING [None]
  - OEDEMA PERIPHERAL [None]
  - SWELLING FACE [None]
